FAERS Safety Report 7820124-6 (Version None)
Quarter: 2011Q4

REPORT INFORMATION
  Report Type: 
  Country: None (occurrence: None)
  Receive Date: 20111018
  Receipt Date: 20111013
  Transmission Date: 20120403
  Serious: Yes (Death, Other)
  Sender: FDA-Public Use
  Company Number: PHHY2011PL82390

PATIENT
  Sex: Female

DRUGS (1)
  1. LETROZOLE [Suspect]
     Dates: start: 20070103, end: 20071210

REACTIONS (3)
  - NEOPLASM MALIGNANT [None]
  - DEATH [None]
  - NEOPLASM PROGRESSION [None]
